FAERS Safety Report 4583333-8 (Version None)
Quarter: 2005Q1

REPORT INFORMATION
  Report Type: 
  Country: None (occurrence: None)
  Receive Date: 20050125
  Receipt Date: 20041105
  Transmission Date: 20050727
  Serious: No
  Sender: FDA-Public Use
  Company Number: USA040157063

PATIENT
  Age: 71 Year
  Sex: Female
  Weight: 73 kg

DRUGS (4)
  1. FORTEO [Suspect]
     Indication: OSTEOPOROSIS
     Dosage: 20 UG DAY
     Dates: start: 20030929
  2. PREMPRO [Concomitant]
  3. CALCIUM GLUCONATE [Concomitant]
  4. HYDROCHLOROTHIAZIDE [Concomitant]

REACTIONS (5)
  - ACCIDENTAL OVERDOSE [None]
  - BACK PAIN [None]
  - HEADACHE [None]
  - MEDICATION ERROR [None]
  - MUSCLE SPASMS [None]
